FAERS Safety Report 5495591-6 (Version None)
Quarter: 2007Q4

REPORT INFORMATION
  Report Type: 
  Country: None (occurrence: None)
  Receive Date: 20071015
  Receipt Date: 20061026
  Transmission Date: 20080405
  Serious: Yes (Other)
  Sender: FDA-Public Use
  Company Number: S06-USA-04506-01

PATIENT
  Age: 27 Year
  Sex: Female

DRUGS (2)
  1. LEXAPRO [Suspect]
     Indication: ANXIETY
     Dosage: 10 MG QD PO
     Route: 048
     Dates: start: 20061001, end: 20061023
  2. EFFEXOR XR [Suspect]
     Indication: ANXIETY
     Dosage: 150 MG QD
     Dates: end: 20061001

REACTIONS (1)
  - SUICIDAL IDEATION [None]
